FAERS Safety Report 8096318-4 (Version None)
Quarter: 2012Q1

REPORT INFORMATION
  Report Type: 
  Country: None (occurrence: None)
  Receive Date: 20120129
  Receipt Date: 20111230
  Transmission Date: 20120608
  Serious: No
  Sender: FDA-Public Use
  Company Number: US-ABBOTT-12P-163-0888852-00

PATIENT
  Age: 49 Year
  Sex: Female

DRUGS (15)
  1. ASACOL [Concomitant]
     Indication: COLITIS MICROSCOPIC
  2. TOPIRAMATE [Concomitant]
     Indication: NEURALGIA
  3. FISH OIL [Concomitant]
     Indication: PRODUCT USED FOR UNKNOWN INDICATION
  4. NEXIUM [Concomitant]
     Indication: GASTROOESOPHAGEAL REFLUX DISEASE
  5. ELIDEL [Concomitant]
     Indication: PRURITUS
  6. FLONASE [Concomitant]
     Indication: HYPERSENSITIVITY
     Dosage: 2 SPRAYS PER DAY
  7. SORIATANE [Concomitant]
     Indication: PRODUCT USED FOR UNKNOWN INDICATION
     Dates: end: 20111201
  8. PROTOPIC [Concomitant]
     Indication: PSORIASIS
     Dosage: ON FEET AND HANDS
  9. HUMIRA [Suspect]
     Indication: PSORIASIS
     Dates: start: 20111013
  10. ALLERGY DROPS [Concomitant]
     Indication: PRODUCT USED FOR UNKNOWN INDICATION
  11. OXYCONTIN [Concomitant]
     Indication: PAIN
     Dosage: EVERY 8 HOURS
  12. FLONASE [Concomitant]
     Indication: ASTHMA
  13. XANAX [Concomitant]
     Indication: ANXIETY
  14. PROVIGIL [Concomitant]
     Indication: SOMNOLENCE
  15. MEDROXYPROGESTERONE [Concomitant]
     Indication: HORMONE REPLACEMENT THERAPY

REACTIONS (2)
  - DRY SKIN [None]
  - INJECTION SITE PAIN [None]
